FAERS Safety Report 25722794 (Version 1)
Quarter: 2025Q3

REPORT INFORMATION
  Report Type: Spontaneous
  Country: US (occurrence: US)
  Receive Date: 20250825
  Receipt Date: 20250825
  Transmission Date: 20251020
  Serious: No
  Sender: ARMSTRONG PHARMACEUTICALS, INC.
  Company Number: US-Armstrong Pharmaceuticals, Inc.-2183151

PATIENT
  Sex: Female

DRUGS (1)
  1. PRIMATENE MIST [Suspect]
     Active Substance: EPINEPHRINE
     Indication: Bronchitis

REACTIONS (1)
  - Oral pain [Unknown]

NARRATIVE: CASE EVENT DATE: 20250423
